FAERS Safety Report 25145411 (Version 1)
Quarter: 2025Q2

REPORT INFORMATION
  Report Type: Spontaneous
  Country: US (occurrence: US)
  Receive Date: 20250401
  Receipt Date: 20250401
  Transmission Date: 20250716
  Serious: No
  Sender: SANOFI AVENTIS
  Company Number: US-SANOFI-02467680

PATIENT
  Age: 52 Year

DRUGS (1)
  1. DUPIXENT [Suspect]
     Active Substance: DUPILUMAB
     Indication: Dermatitis atopic
     Dosage: 300 MG, QOW
     Route: 065

REACTIONS (4)
  - Lip pain [Unknown]
  - Gingival pain [Unknown]
  - Pyrexia [Unknown]
  - Blister [Unknown]

NARRATIVE: CASE EVENT DATE: 20250326
